FAERS Safety Report 23312557 (Version 1)
Quarter: 2023Q4

REPORT INFORMATION
  Report Type: Spontaneous
  Country: CH (occurrence: CH)
  Receive Date: 20231219
  Receipt Date: 20231219
  Transmission Date: 20240109
  Serious: Yes (Hospitalization)
  Sender: FDA-Public Use
  Company Number: None

PATIENT
  Age: 71 Year
  Sex: Male
  Weight: 120 kg

DRUGS (19)
  1. TECENTRIQ [Suspect]
     Active Substance: ATEZOLIZUMAB
     Indication: Metastatic bronchial carcinoma
     Dosage: UNKNOWN WHETHER THERAPY IS GIVEN CYCLICALLY AND WILL BE CONTINUED. SO FAR ONCE GIVEN ON 27.09.202...
     Route: 041
     Dates: start: 20230927
  2. TORSEMIDE [Suspect]
     Active Substance: TORSEMIDE
     Indication: Product used for unknown indication
     Route: 048
     Dates: start: 20230912, end: 20231024
  3. OZEMPIC [Suspect]
     Active Substance: SEMAGLUTIDE
     Indication: Diabetes mellitus
     Route: 058
     Dates: start: 20230830, end: 20231024
  4. DAPAGLIFLOZIN [Concomitant]
     Active Substance: DAPAGLIFLOZIN
     Indication: Cardiac failure chronic
     Route: 048
  5. AMLODIPINE BESYLATE [Concomitant]
     Active Substance: AMLODIPINE BESYLATE
     Indication: Cardiac failure chronic
     Route: 048
  6. METFORMIN [Concomitant]
     Active Substance: METFORMIN HYDROCHLORIDE
     Indication: Diabetes mellitus
     Route: 048
  7. ROSUVASTATIN [Concomitant]
     Active Substance: ROSUVASTATIN
     Indication: Coronary artery disease
     Route: 048
  8. EZETIMIBE [Concomitant]
     Active Substance: EZETIMIBE
     Indication: Coronary artery disease
     Route: 048
  9. VEMLIDY [Concomitant]
     Active Substance: TENOFOVIR ALAFENAMIDE FUMARATE
     Route: 048
     Dates: start: 20230425
  10. MAGNESIUM ASPARTATE HYDROCHLORIDE [Concomitant]
     Active Substance: MAGNESIUM ASPARTATE HYDROCHLORIDE
     Indication: Cardiac failure chronic
     Route: 048
  11. TROSPIUM [Concomitant]
     Active Substance: TROSPIUM
     Indication: Benign prostatic hyperplasia
     Route: 048
  12. TAMSULOSIN [Concomitant]
     Active Substance: TAMSULOSIN
     Indication: Benign prostatic hyperplasia
     Route: 048
  13. DAFALGAN [Concomitant]
     Active Substance: ACETAMINOPHEN
     Indication: Pain
     Route: 048
  14. NALOXONE HYDROCHLORIDE\OXYCODONE HYDROCHLORIDE [Concomitant]
     Active Substance: NALOXONE HYDROCHLORIDE\OXYCODONE HYDROCHLORIDE
     Indication: Pain
     Dosage: 10/5 MG
     Route: 048
  15. NEXIUM [Concomitant]
     Active Substance: ESOMEPRAZOLE MAGNESIUM
     Route: 048
  16. TOUJEO [Concomitant]
     Active Substance: INSULIN GLARGINE
     Indication: Diabetes mellitus
     Route: 058
  17. XARELTO [Concomitant]
     Active Substance: RIVAROXABAN
     Indication: Atrial fibrillation
     Route: 048
  18. CANDESARTAN [Concomitant]
     Active Substance: CANDESARTAN
     Indication: Cardiac failure chronic
     Route: 048
  19. NEBIVOLOL [Concomitant]
     Active Substance: NEBIVOLOL
     Indication: Cardiac failure chronic
     Route: 048

REACTIONS (3)
  - Hypokalaemia [Recovered/Resolved]
  - Ventricular extrasystoles [Recovered/Resolved]
  - Acute kidney injury [Recovered/Resolved]

NARRATIVE: CASE EVENT DATE: 20231024
